FAERS Safety Report 8767285 (Version 1)
Quarter: 2012Q4

REPORT INFORMATION
  Report Type: 
  Country: RU (occurrence: RU)
  Receive Date: 20120904
  Receipt Date: 20120904
  Transmission Date: 20130627
  Serious: Yes (Other)
  Sender: FDA-Public Use
  Company Number: RU-GLAXOSMITHKLINE-B0827156A

PATIENT
  Sex: Female

DRUGS (5)
  1. ARIXTRA [Suspect]
     Indication: PRODUCT USED FOR UNKNOWN INDICATION
     Dosage: 2.5MG per day
     Route: 058
  2. CLOPIDOGREL [Concomitant]
     Indication: ACUTE CORONARY SYNDROME
     Dosage: 75MG per day
     Route: 048
  3. ASPIRIN [Concomitant]
     Indication: ACUTE CORONARY SYNDROME
  4. ANGINA MEDICATION [Concomitant]
  5. UNKNOWN MEDICATION [Concomitant]

REACTIONS (1)
  - Melaena [Recovered/Resolved]
